FAERS Safety Report 23800937 (Version 2)
Quarter: 2024Q3

REPORT INFORMATION
  Report Type: Report from Study
  Country: NL (occurrence: NL)
  Receive Date: 20240430
  Receipt Date: 20240916
  Transmission Date: 20241017
  Serious: No
  Sender: TEVA
  Company Number: NL-TEVA-VS-3191421

PATIENT
  Age: 75 Year
  Sex: Female

DRUGS (1)
  1. AJOVY [Suspect]
     Active Substance: FREMANEZUMAB-VFRM
     Indication: Migraine
     Route: 058
     Dates: start: 20200417, end: 20240412

REACTIONS (1)
  - Product use issue [Unknown]
